FAERS Safety Report 7128653-8 (Version None)
Quarter: 2010Q4

REPORT INFORMATION
  Report Type: 
  Country: None (occurrence: None)
  Receive Date: 20101130
  Receipt Date: 20100507
  Transmission Date: 20110411
  Serious: No
  Sender: FDA-Public Use
  Company Number: US-PFIZER INC-2010058647

PATIENT
  Sex: Male
  Weight: 70.295 kg

DRUGS (5)
  1. VIAGRA [Suspect]
     Indication: ERECTILE DYSFUNCTION
     Dosage: UNK
  2. NEBIVOLOL [Concomitant]
     Indication: HYPERTENSION
     Dosage: 5 MG, UNK
  3. LIPITOR [Concomitant]
     Indication: BLOOD CHOLESTEROL INCREASED
     Dosage: UNK
  4. ANDROGEL [Concomitant]
     Indication: BLOOD TESTOSTERONE INCREASED
     Dosage: UNK
  5. DARIFENACIN [Concomitant]
     Indication: DYSURIA
     Dosage: UNK

REACTIONS (1)
  - ANORGASMIA [None]
